FAERS Safety Report 4304440-0 (Version None)
Quarter: 2004Q1

REPORT INFORMATION
  Report Type: 
  Country: None (occurrence: None)
  Receive Date: 20040224
  Receipt Date: 20040212
  Transmission Date: 20041129
  Serious: Yes (Hospitalization)
  Sender: FDA-Public Use
  Company Number: 9934026

PATIENT
  Age: 60 Year
  Sex: Female

DRUGS (3)
  1. AMLODIPINE [Suspect]
     Indication: HYPERTENSION
     Dosage: 5 MG (DAILY), ORAL
     Route: 048
     Dates: start: 19990730
  2. PROPATYL NITRATE (PROPATYLNITRATE) [Concomitant]
  3. CHLORPROPAMIDE [Concomitant]

REACTIONS (2)
  - BREAST MASS [None]
  - CARCINOMA [None]
